FAERS Safety Report 6046131-4 (Version None)
Quarter: 2009Q1

REPORT INFORMATION
  Report Type: 
  Country: None (occurrence: None)
  Receive Date: 20090121
  Receipt Date: 20090121
  Transmission Date: 20090719
  Serious: No
  Sender: FDA-Public Use
  Company Number: None

PATIENT
  Sex: Male
  Weight: 104 kg

DRUGS (3)
  1. CYCLOPHOSPHAMIDE [Suspect]
     Dosage: 1200 MG
  2. PENTOSTATIN [Suspect]
     Dosage: 4 MG
  3. RITUXIMAB (MOAB CXB8 ANT CD20, CHIMERIC) [Suspect]
     Dosage: 750 MG

REACTIONS (1)
  - NEUTROPHIL COUNT DECREASED [None]
